FAERS Safety Report 6369265-3 (Version None)
Quarter: 2009Q3

REPORT INFORMATION
  Report Type: 
  Country: None (occurrence: None)
  Receive Date: 20090916
  Receipt Date: 20090908
  Transmission Date: 20100115
  Serious: Yes (Hospitalization)
  Sender: FDA-Public Use
  Company Number: ADR20762009

PATIENT
  Age: 14 Year
  Sex: Male

DRUGS (3)
  1. SERTRALINE HCL [Suspect]
     Indication: DEPRESSION
     Dosage: 50MG
     Route: 064
  2. BENZYLPENICILLIN [Concomitant]
  3. GENTAMICIN [Concomitant]

REACTIONS (10)
  - BRADYCARDIA [None]
  - CAESAREAN SECTION [None]
  - CONVULSION NEONATAL [None]
  - DYSKINESIA [None]
  - GRUNTING [None]
  - HYPERVIGILANCE [None]
  - MATERNAL DRUGS AFFECTING FOETUS [None]
  - NEONATAL TACHYPNOEA [None]
  - POLYHYDRAMNIOS [None]
  - TREMOR NEONATAL [None]
